FAERS Safety Report 19400029 (Version 6)
Quarter: 2021Q3

REPORT INFORMATION
  Report Type: Report from Study
  Country: CO (occurrence: CO)
  Receive Date: 20210610
  Receipt Date: 20210910
  Transmission Date: 20211014
  Serious: Yes (Hospitalization, Other)
  Sender: FDA-Public Use
  Company Number: NVSC2021CO127053

PATIENT
  Sex: Female
  Weight: 64 kg

DRUGS (5)
  1. AMPICILLIN AND SULBACTAM [Suspect]
     Active Substance: AMPICILLIN SODIUM\SULBACTAM SODIUM
     Indication: PRODUCT USED FOR UNKNOWN INDICATION
     Dosage: UNK
     Route: 065
  2. TAFINLAR [Suspect]
     Active Substance: DABRAFENIB MESYLATE
     Indication: METASTATIC MALIGNANT MELANOMA
     Dosage: 150 MG, Q12H
     Route: 048
     Dates: start: 20210515
  3. LEVOTHYROXINE. [Concomitant]
     Active Substance: LEVOTHYROXINE
     Indication: HYPOTHYROIDISM
     Dosage: 1000 UG, QD (20 YEARS AGO)
     Route: 048
  4. METOPROLOL. [Suspect]
     Active Substance: METOPROLOL
     Indication: TACHYCARDIA
     Dosage: 50 MG, Q12H (2 YEARS AGO)
     Route: 065
  5. MEKINIST [Suspect]
     Active Substance: TRAMETINIB DIMETHYL SULFOXIDE
     Indication: METASTATIC MALIGNANT MELANOMA
     Dosage: 2 MG, QD
     Route: 048
     Dates: start: 20210515

REACTIONS (14)
  - Dehydration [Unknown]
  - Infection [Unknown]
  - Renal failure [Unknown]
  - Inflammation [Unknown]
  - Blood lactate dehydrogenase increased [Unknown]
  - Anxiety [Unknown]
  - Rash [Unknown]
  - Confusional state [Unknown]
  - Discouragement [Unknown]
  - Pyrexia [Unknown]
  - General physical health deterioration [Unknown]
  - Malaise [Unknown]
  - Fear [Unknown]
  - Somnolence [Unknown]
